FAERS Safety Report 6650310-2 (Version None)
Quarter: 2010Q1

REPORT INFORMATION
  Report Type: 
  Country: None (occurrence: None)
  Receive Date: 20100325
  Receipt Date: 20100315
  Transmission Date: 20100710
  Serious: Yes (Other)
  Sender: FDA-Public Use
  Company Number: PHHY2010ES15925

PATIENT
  Age: 27 Year

DRUGS (1)
  1. CARBAMAZEPINE [Suspect]

REACTIONS (1)
  - DRUG TOXICITY [None]
